FAERS Safety Report 5645658-4 (Version None)
Quarter: 2008Q1

REPORT INFORMATION
  Report Type: 
  Country: None (occurrence: None)
  Receive Date: 20080229
  Receipt Date: 20080219
  Transmission Date: 20080703
  Serious: Yes (Life-Threatening, Hospitalization)
  Sender: FDA-Public Use
  Company Number: AU-AMGEN-US250669

PATIENT
  Sex: Male
  Weight: 57.7 kg

DRUGS (17)
  1. PANITUMUMAB [Suspect]
     Indication: SQUAMOUS CELL CARCINOMA
     Route: 042
     Dates: start: 20070823, end: 20071031
  2. CISPLATIN [Concomitant]
     Route: 065
  3. FLUOROURACIL [Concomitant]
     Route: 065
  4. EMEND [Concomitant]
     Route: 048
     Dates: start: 20070827, end: 20071103
  5. PANTOPRAZOLE [Concomitant]
     Route: 048
     Dates: start: 20070826
  6. LACTULOSE [Concomitant]
     Route: 048
     Dates: start: 20070815, end: 20070919
  7. DOCUSATE [Concomitant]
     Route: 048
     Dates: start: 20070827, end: 20070919
  8. METOCLOPRAMIDE [Concomitant]
     Route: 042
     Dates: start: 20070824, end: 20070827
  9. TEMAZEPAM [Concomitant]
     Route: 048
     Dates: start: 20070825, end: 20070827
  10. TEMAZEPAM [Concomitant]
     Route: 048
     Dates: start: 20070915, end: 20070916
  11. CLEXANE [Concomitant]
     Route: 058
     Dates: start: 20070824, end: 20070828
  12. XYLOCAINE VISCOUS [Concomitant]
     Route: 048
     Dates: start: 20070827, end: 20070827
  13. LORAZEPAM [Concomitant]
     Route: 048
     Dates: start: 20070827
  14. PANADEINE [Concomitant]
     Route: 048
     Dates: start: 20070815
  15. MINOCYCLINE HCL [Concomitant]
     Route: 048
     Dates: start: 20070914, end: 20070915
  16. TIMENTIN [Concomitant]
     Route: 042
     Dates: start: 20070924, end: 20070928
  17. POTASSIUM CHLORIDE [Concomitant]
     Route: 048
     Dates: start: 20070925

REACTIONS (24)
  - BLOOD ALBUMIN DECREASED [None]
  - BLOOD ALKALINE PHOSPHATASE INCREASED [None]
  - BLOOD BILIRUBIN INCREASED [None]
  - BLOOD CALCIUM DECREASED [None]
  - BLOOD CHLORIDE DECREASED [None]
  - BLOOD CORTISOL INCREASED [None]
  - BLOOD CREATININE INCREASED [None]
  - BLOOD MAGNESIUM DECREASED [None]
  - BLOOD POTASSIUM DECREASED [None]
  - BLOOD PRESSURE DECREASED [None]
  - BLOOD SODIUM DECREASED [None]
  - DEHYDRATION [None]
  - DISEASE PROGRESSION [None]
  - GAMMA-GLUTAMYLTRANSFERASE INCREASED [None]
  - HAEMATOCRIT DECREASED [None]
  - HAEMOGLOBIN DECREASED [None]
  - HEADACHE [None]
  - HYPERSENSITIVITY [None]
  - HYPOTENSION [None]
  - INFUSION RELATED REACTION [None]
  - RED BLOOD CELL COUNT DECREASED [None]
  - URINE OUTPUT DECREASED [None]
  - WHEEZING [None]
  - WHITE BLOOD CELL COUNT DECREASED [None]
